FAERS Safety Report 22383712 (Version 1)
Quarter: 2023Q2

REPORT INFORMATION
  Report Type: Report from Study
  Country: CN (occurrence: CN)
  Receive Date: 20230530
  Receipt Date: 20230530
  Transmission Date: 20230722
  Serious: Yes (Other)
  Sender: FDA-Public Use
  Company Number: CN-SUN PHARMACEUTICAL INDUSTRIES LTD-2023R1-391831

PATIENT

DRUGS (6)
  1. CARBOPLATIN [Suspect]
     Active Substance: CARBOPLATIN
     Indication: Chemotherapy
     Dosage: UNK
     Route: 065
  2. PEMETREXED [Suspect]
     Active Substance: PEMETREXED
     Indication: Chemotherapy
     Dosage: UNK (10 MG)
     Route: 037
  3. PEMETREXED [Suspect]
     Active Substance: PEMETREXED
     Dosage: UNK (50 MG)
     Route: 037
  4. SINTILIMAB [Suspect]
     Active Substance: SINTILIMAB
     Indication: Chemotherapy
     Dosage: UNK
     Route: 065
  5. FOLIC ACID [Concomitant]
     Active Substance: FOLIC ACID
     Indication: Supplementation therapy
     Dosage: 400 MILLIGRAM, DAILY
     Route: 048
  6. VITAMIN B12 [Concomitant]
     Active Substance: CYANOCOBALAMIN
     Indication: Supplementation therapy
     Dosage: UNK (1000 MG, REPEATED EVERY 9 WEEKS)
     Route: 030

REACTIONS (1)
  - Treatment failure [Unknown]
